FAERS Safety Report 8435235 (Version 4)
Quarter: 2013Q1

REPORT INFORMATION
  Report Type: Report from Study
  Country: NL (occurrence: NL)
  Receive Date: 20120301
  Receipt Date: 20130124
  Transmission Date: 20140127
  Serious: Yes (Hospitalization)
  Sender: FDA-Public Use
  Company Number: NL-JNJFOC-20120211733

PATIENT
  Age: 13 Year
  Sex: Male
  Weight: 47.5 kg

DRUGS (5)
  1. REMICADE [Suspect]
     Indication: CROHN^S DISEASE
     Route: 042
     Dates: start: 20100615
  2. HUMIRA [Concomitant]
     Indication: CROHN^S DISEASE
  3. HUMIRA [Concomitant]
     Indication: CROHN^S DISEASE
     Dates: start: 20120208
  4. PREDNISONE [Concomitant]
     Dates: start: 20120212
  5. PREDNISONE [Concomitant]

REACTIONS (1)
  - Crohn^s disease [Recovered/Resolved]
